FAERS Safety Report 25636477 (Version 1)
Quarter: 2025Q3

REPORT INFORMATION
  Report Type: Spontaneous
  Country: US (occurrence: US)
  Receive Date: 20250803
  Receipt Date: 20250803
  Transmission Date: 20251020
  Serious: No
  Sender: BAUSCH AND LOMB
  Company Number: US-BAUSCHBL-2025BNL013388

PATIENT
  Sex: Female

DRUGS (1)
  1. XIIDRA [Suspect]
     Active Substance: LIFITEGRAST
     Indication: Product used for unknown indication
     Route: 047
     Dates: start: 2018

REACTIONS (4)
  - Vision blurred [Unknown]
  - Eye irritation [Unknown]
  - Product odour abnormal [Unknown]
  - Product quality issue [Unknown]
